FAERS Safety Report 13553401 (Version 1)
Quarter: 2017Q2

REPORT INFORMATION
  Report Type: Spontaneous
  Country: GT (occurrence: GT)
  Receive Date: 20170517
  Receipt Date: 20170517
  Transmission Date: 20170830
  Serious: Yes (Other)
  Sender: FDA-Public Use
  Company Number: GT-ROCHE-1934339

PATIENT
  Age: 48 Year
  Sex: Female

DRUGS (6)
  1. TAMOXIFENO [Concomitant]
     Indication: HER-2 POSITIVE BREAST CANCER
  2. LAPATINIB [Concomitant]
     Active Substance: LAPATINIB
     Indication: HER-2 POSITIVE BREAST CANCER
  3. TRASTUZUMAB [Suspect]
     Active Substance: TRASTUZUMAB
     Indication: HER-2 POSITIVE BREAST CANCER
     Route: 065
  4. XELODA [Suspect]
     Active Substance: CAPECITABINE
     Indication: HER-2 POSITIVE BREAST CANCER
     Route: 065
     Dates: start: 201301
  5. XELODA [Suspect]
     Active Substance: CAPECITABINE
     Route: 065
     Dates: start: 201305, end: 201405
  6. EXEMESTANE. [Concomitant]
     Active Substance: EXEMESTANE
     Indication: HER-2 POSITIVE BREAST CANCER
     Route: 065
     Dates: start: 201405

REACTIONS (6)
  - Toxicity to various agents [Unknown]
  - Central nervous system lesion [Unknown]
  - Dizziness [Unknown]
  - Romberg test positive [Unknown]
  - Neoplasm [Unknown]
  - Cerebellar syndrome [Unknown]
